FAERS Safety Report 8837863 (Version 2)
Quarter: 2012Q4

REPORT INFORMATION
  Report Type: 
  Country: JP (occurrence: JP)
  Receive Date: 20121012
  Receipt Date: 20121024
  Transmission Date: 20130627
  Serious: Yes (Life-Threatening)
  Sender: FDA-Public Use
  Company Number: JP-B.I. PHARMACEUTICALS,INC./RIDGEFIELD-2012-BP-22676NB

PATIENT
  Age: 58 Year
  Sex: Male
  Weight: 59.7 kg

DRUGS (5)
  1. PRADAXA [Suspect]
     Indication: ATRIAL FIBRILLATION
     Dosage: 220 mg
     Route: 048
     Dates: start: 20120808, end: 20120907
  2. EC-DOPARL [Concomitant]
     Indication: PARKINSON^S DISEASE
     Dosage: 100 mg
     Route: 048
     Dates: start: 20120731, end: 20120907
  3. MAINTATE [Concomitant]
     Indication: TACHYCARDIA
     Dosage: 2.5 mg
     Route: 048
     Dates: start: 20120808, end: 20120907
  4. PURSENNID [Concomitant]
     Indication: CONSTIPATION
     Dosage: 12 mg
     Route: 048
     Dates: start: 20120821, end: 20120906
  5. ALINAMIN-F [Concomitant]
     Indication: VITAMIN B1 DEFICIENCY
     Dosage: 50 mg
     Route: 048
     Dates: start: 20120821, end: 20120907

REACTIONS (2)
  - Gastric ulcer haemorrhage [Not Recovered/Not Resolved]
  - Embolic stroke [Not Recovered/Not Resolved]
